FAERS Safety Report 7491084-5 (Version None)
Quarter: 2011Q2

REPORT INFORMATION
  Report Type: 
  Country: None (occurrence: None)
  Receive Date: 20110519
  Receipt Date: 20110510
  Transmission Date: 20111010
  Serious: Yes (Other)
  Sender: FDA-Public Use
  Company Number: US-AMGEN-USASP2011012472

PATIENT
  Age: 55 Year
  Sex: Female

DRUGS (1)
  1. ENBREL [Suspect]
     Indication: RHEUMATOID ARTHRITIS
     Dosage: 50 MG, QWK
     Dates: start: 20110120, end: 20110320

REACTIONS (22)
  - GENERALISED ERYTHEMA [None]
  - ANAL HAEMORRHAGE [None]
  - PYREXIA [None]
  - VAGINAL INFECTION [None]
  - GINGIVAL RECESSION [None]
  - SWELLING FACE [None]
  - ABNORMAL SENSATION IN EYE [None]
  - TOOTH INFECTION [None]
  - RHEUMATOID ARTHRITIS [None]
  - HEADACHE [None]
  - DIZZINESS [None]
  - BEDRIDDEN [None]
  - PRURITUS [None]
  - BLISTER [None]
  - ANAL INFECTION [None]
  - RASH [None]
  - BURNING SENSATION [None]
  - NAUSEA [None]
  - FEELING COLD [None]
  - VAGINAL HAEMORRHAGE [None]
  - SWELLING [None]
  - ONYCHOMYCOSIS [None]
